FAERS Safety Report 4906745-9 (Version None)
Quarter: 2006Q1

REPORT INFORMATION
  Report Type: 
  Country: None (occurrence: None)
  Receive Date: 20060209
  Receipt Date: 20060119
  Transmission Date: 20060701
  Serious: Yes (Other)
  Sender: FDA-Public Use
  Company Number: JP-ROCHE-433242

PATIENT
  Age: 30 Year
  Sex: Female

DRUGS (2)
  1. TAMIFLU [Suspect]
     Route: 048
     Dates: start: 20060117, end: 20060117
  2. TAMIFLU [Suspect]
     Route: 048
     Dates: start: 20060118, end: 20060118

REACTIONS (1)
  - PURPURA [None]
